FAERS Safety Report 6581843-5 (Version None)
Quarter: 2010Q1

REPORT INFORMATION
  Report Type: 
  Country: None (occurrence: None)
  Receive Date: 20100215
  Receipt Date: 20100113
  Transmission Date: 20100710
  Serious: No
  Sender: FDA-Public Use
  Company Number: US-BAYER-201010514BCC

PATIENT
  Age: 39 Year
  Sex: Female
  Weight: 168 kg

DRUGS (1)
  1. ALEVE (CAPLET) [Suspect]
     Indication: ARTHRALGIA
     Dosage: AS USED: 220 MG  UNIT DOSE: 220 MG
     Route: 048

REACTIONS (2)
  - DRY MOUTH [None]
  - SWOLLEN TONGUE [None]
